FAERS Safety Report 25156150 (Version 1)
Quarter: 2025Q2

REPORT INFORMATION
  Report Type: Spontaneous
  Country: US (occurrence: US)
  Receive Date: 20250403
  Receipt Date: 20250403
  Transmission Date: 20250717
  Serious: Yes (Other)
  Sender: VIVUS
  Company Number: US-PPDUS-2025V1000483

PATIENT
  Sex: Female

DRUGS (1)
  1. QSYMIA [Suspect]
     Active Substance: PHENTERMINE HYDROCHLORIDE\TOPIRAMATE
     Indication: Product used for unknown indication
     Route: 048

REACTIONS (5)
  - Depression suicidal [Unknown]
  - Abnormal behaviour [Unknown]
  - Self-injurious ideation [Unknown]
  - Fear [Unknown]
  - Mental status changes [Unknown]
